FAERS Safety Report 24742320 (Version 2)
Quarter: 2025Q2

REPORT INFORMATION
  Report Type: Spontaneous
  Country: CN (occurrence: CN)
  Receive Date: 20241217
  Receipt Date: 20250526
  Transmission Date: 20250717
  Serious: Yes (Other)
  Sender: ALEXION PHARMACEUTICALS
  Company Number: CN-sdluye-SDLY2024124156

PATIENT
  Age: 45 Year

DRUGS (5)
  1. QUETIAPINE FUMARATE [Suspect]
     Active Substance: QUETIAPINE FUMARATE
     Route: 065
  2. SEROQUEL XR [Suspect]
     Active Substance: QUETIAPINE FUMARATE
     Indication: Anxiety
     Route: 065
  3. SEROQUEL XR [Suspect]
     Active Substance: QUETIAPINE FUMARATE
     Indication: Sleep disorder
  4. PAROXETINE [Concomitant]
     Active Substance: PAROXETINE
     Indication: Anxiety
     Route: 065
  5. PAROXETINE [Concomitant]
     Active Substance: PAROXETINE
     Indication: Sleep disorder

REACTIONS (8)
  - Triple positive breast cancer [Not Recovered/Not Resolved]
  - Somnolence [Unknown]
  - Increased appetite [Unknown]
  - Muscle twitching [Unknown]
  - Constipation [Unknown]
  - Heavy menstrual bleeding [Unknown]
  - Breast pain [Unknown]
  - Off label use [Unknown]
